FAERS Safety Report 8220232-4 (Version None)
Quarter: 2012Q1

REPORT INFORMATION
  Report Type: 
  Country: None (occurrence: None)
  Receive Date: 20120320
  Receipt Date: 20120309
  Transmission Date: 20120608
  Serious: Yes (Hospitalization)
  Sender: FDA-Public Use
  Company Number: US-BAYER-2011-028404

PATIENT
  Age: 43 Year
  Sex: Female

DRUGS (4)
  1. LEXAPRO [Concomitant]
     Dosage: 10 UNK, UNK
  2. YAZ [Suspect]
     Indication: CONTRACEPTION
  3. SYNTHROID [Concomitant]
     Dosage: 137 DAILY
  4. AMLODIPINE [Concomitant]
     Indication: HYPERTENSION

REACTIONS (2)
  - INJURY [None]
  - PULMONARY EMBOLISM [None]
